FAERS Safety Report 6441540-3 (Version None)
Quarter: 2009Q4

REPORT INFORMATION
  Report Type: 
  Country: None (occurrence: None)
  Receive Date: 20091116
  Receipt Date: 20091107
  Transmission Date: 20100525
  Serious: No
  Sender: FDA-Public Use
  Company Number: US-B.I. PHARMACEUTICALS,INC./RIDGEFIELD-2009-BP-13069BP

PATIENT
  Sex: Female

DRUGS (1)
  1. SPIRIVA [Suspect]
     Indication: OXYGEN SATURATION DECREASED
     Dosage: 18 MCG
     Route: 055
     Dates: start: 20090101

REACTIONS (2)
  - CONSTIPATION [None]
  - DRUG INEFFECTIVE [None]
